FAERS Safety Report 10095067 (Version 4)
Quarter: 2014Q4

REPORT INFORMATION
  Report Type: Spontaneous
  Country: US (occurrence: US)
  Receive Date: 20140422
  Receipt Date: 20141105
  Transmission Date: 20150528
  Serious: Yes (Hospitalization, Other)
  Sender: FDA-Public Use
  Company Number: US-BAYER-2014-058033

PATIENT
  Age: 21 Year
  Sex: Female
  Weight: 65.76 kg

DRUGS (3)
  1. MIRENA [Suspect]
     Active Substance: LEVONORGESTREL
     Indication: CONTRACEPTION
     Dosage: 20 MCG/24HR, CONT
     Route: 015
     Dates: start: 20111012, end: 20120530
  2. ACYCLOVIR [ACICLOVIR] [Concomitant]
     Active Substance: ACYCLOVIR
     Indication: GENITAL HERPES
     Dosage: 400 MG, UNK
     Route: 048
     Dates: start: 2006
  3. ACYCLOVIR [ACICLOVIR] [Concomitant]
     Active Substance: ACYCLOVIR
     Indication: GENITAL HERPES
     Dosage: 400 MG, UNK
     Route: 048
     Dates: start: 201106

REACTIONS (18)
  - Genital haemorrhage [None]
  - Emotional distress [None]
  - Internal injury [None]
  - Uterine scar [None]
  - Medical device discomfort [None]
  - Depression [None]
  - Menstruation irregular [None]
  - Device dislocation [None]
  - Injury [None]
  - Abdominal pain [None]
  - Anxiety [None]
  - Fear [None]
  - Infection [None]
  - Pain [None]
  - Depressed mood [None]
  - Uterine perforation [None]
  - Device issue [None]
  - Psychological trauma [None]

NARRATIVE: CASE EVENT DATE: 2012
